FAERS Safety Report 9750665 (Version 2)
Quarter: 2014Q2

REPORT INFORMATION
  Report Type: Spontaneous
  Country: US (occurrence: US)
  Receive Date: 20131212
  Receipt Date: 20140522
  Transmission Date: 20141212
  Serious: No
  Sender: FDA-Public Use
  Company Number: US-BIOGENIDEC-2013BI099026

PATIENT
  Age: 71 Year
  Sex: Female

DRUGS (16)
  1. TECFIDERA [Suspect]
     Indication: MULTIPLE SCLEROSIS
     Route: 048
     Dates: start: 20130808, end: 20130816
  2. TECFIDERA [Suspect]
     Indication: MULTIPLE SCLEROSIS
     Route: 048
     Dates: start: 20130816, end: 20130927
  3. TECFIDERA [Suspect]
     Indication: MULTIPLE SCLEROSIS
     Route: 048
     Dates: start: 20130808
  4. AVONEX [Concomitant]
     Route: 030
     Dates: start: 20020428, end: 20130808
  5. ATORVASTATIN CALCIUM [Concomitant]
  6. AVASTIN [Concomitant]
  7. CEPHALEXIN [Concomitant]
  8. DESONIDE [Concomitant]
  9. ENALAPRIL MALEATE [Concomitant]
  10. HYDROCHLORTHIAZIDE [Concomitant]
  11. LUMIGAN [Concomitant]
  12. MODAFINIL [Concomitant]
  13. PANTOPRAZOLE SODIUM [Concomitant]
  14. TROSPIUM CHLORIDE [Concomitant]
  15. VENLAFAXINE HCL [Concomitant]
  16. GLIPIZIDE [Concomitant]

REACTIONS (7)
  - Depression [Recovered/Resolved]
  - Malaise [Recovered/Resolved]
  - Nausea [Recovered/Resolved]
  - Vomiting [Recovered/Resolved]
  - Flushing [Recovered/Resolved]
  - Hot flush [Recovered/Resolved]
  - Diarrhoea [Recovered/Resolved]
